FAERS Safety Report 5880612-9 (Version None)
Quarter: 2008Q3

REPORT INFORMATION
  Report Type: 
  Country: None (occurrence: None)
  Receive Date: 20080912
  Receipt Date: 20080606
  Transmission Date: 20090109
  Serious: No
  Sender: FDA-Public Use
  Company Number: US-ABBOTT-08P-163-0455012-00

PATIENT
  Sex: Female
  Weight: 89.892 kg

DRUGS (12)
  1. HUMIRA [Suspect]
     Indication: PSORIATIC ARTHROPATHY
     Route: 058
     Dates: start: 20080101, end: 20080601
  2. ATENOLOL [Concomitant]
     Indication: HYPERTENSION
     Route: 048
  3. FOLIC ACID [Concomitant]
     Indication: VITAMIN SUPPLEMENTATION
     Route: 048
  4. MONTELUKAST SODIUM [Concomitant]
     Indication: ASTHMA
     Route: 048
  5. ZINC [Concomitant]
     Indication: MINERAL SUPPLEMENTATION
     Route: 048
  6. TRIAMTERENE AND HYDROCHLOROTHIAZIDE [Concomitant]
     Indication: HYPERTENSION
     Route: 048
  7. PROPOXYPENE 100/650 [Concomitant]
     Indication: PAIN
     Dosage: 1 TAB 4 X TIMES A DAY AS REQUIRED
     Route: 048
  8. GLUCOSAMINE W/CHONDROITIN SULFATE [Concomitant]
     Indication: MEDICAL DIET
     Route: 048
  9. LEVOFLOXACIN [Concomitant]
     Indication: ANTIBIOTIC PROPHYLAXIS
     Route: 048
  10. PREDNISONE TAB [Concomitant]
     Indication: ANTIINFLAMMATORY THERAPY
     Route: 048
  11. PREDNISONE TAB [Concomitant]
  12. ALBUTEROL SPIROS [Concomitant]
     Indication: BRONCHOSPASM
     Route: 048

REACTIONS (9)
  - HEADACHE [None]
  - INJECTION SITE HAEMATOMA [None]
  - INJECTION SITE IRRITATION [None]
  - INJECTION SITE PAIN [None]
  - INJECTION SITE SWELLING [None]
  - LOWER RESPIRATORY TRACT INFECTION [None]
  - PYREXIA [None]
  - RESPIRATORY TRACT CONGESTION [None]
  - RESPIRATORY TRACT INFECTION [None]
